FAERS Safety Report 9402465 (Version 1)
Quarter: 2013Q3

REPORT INFORMATION
  Report Type: Spontaneous
  Country: US (occurrence: None)
  Receive Date: 20130712
  Receipt Date: 20130712
  Transmission Date: 20140515
  Serious: Yes (Other)
  Sender: FDA-Public Use
  Company Number: None

PATIENT
  Age: 86 Year
  Sex: Male
  Weight: 68.2 kg

DRUGS (9)
  1. AXONA [Suspect]
     Indication: DEMENTIA ALZHEIMER^S TYPE
     Dosage: 1 PACKET; QD; PO 04/22/2013 - 04/23/2013
     Route: 048
     Dates: start: 20130422, end: 20130423
  2. DONEPEZIL [Concomitant]
  3. LEVOTHYROXINE [Concomitant]
  4. WARFARIN [Concomitant]
  5. TRAZODONE [Concomitant]
  6. FERROUS SULFATE [Concomitant]
  7. ATORVASTATIN [Concomitant]
  8. AMOXICILLIN-POT CLAVULANATE [Concomitant]
  9. NITROGLYCERIN [Concomitant]

REACTIONS (7)
  - Fatigue [None]
  - Upper respiratory tract infection [None]
  - Dehydration [None]
  - Scar [None]
  - Pleural effusion [None]
  - Spinal X-ray abnormal [None]
  - Lung consolidation [None]
